FAERS Safety Report 5445521-8 (Version None)
Quarter: 2007Q3

REPORT INFORMATION
  Report Type: 
  Country: None (occurrence: None)
  Receive Date: 20070906
  Receipt Date: 20070822
  Transmission Date: 20080115
  Serious: No
  Sender: FDA-Public Use
  Company Number: US-BOEHRINGER INGELHEIM PHARMACEUTICALS, INC.-2007-BP-18769BP

PATIENT
  Age: 68 Year
  Sex: Male
  Weight: 86 kg

DRUGS (4)
  1. SPIRIVA [Suspect]
     Indication: CHRONIC OBSTRUCTIVE PULMONARY DISEASE
     Route: 055
     Dates: start: 20040101, end: 20070601
  2. ADVAIR DISKUS 500/50 [Concomitant]
  3. MELLARIL [Concomitant]
  4. LASIX [Concomitant]

REACTIONS (1)
  - EYE IRRITATION [None]
